FAERS Safety Report 15492028 (Version 1)
Quarter: 2018Q4

REPORT INFORMATION
  Report Type: Spontaneous
  Country: US (occurrence: US)
  Receive Date: 20181012
  Receipt Date: 20181012
  Transmission Date: 20190205
  Serious: Yes (Death, Hospitalization, Other)
  Sender: FDA-Public Use
  Company Number: US-STRIDES ARCOLAB LIMITED-2018SP008809

PATIENT
  Age: 18 Year
  Sex: Male

DRUGS (4)
  1. AZATHIOPRINE. [Concomitant]
     Active Substance: AZATHIOPRINE
     Indication: PRODUCT USED FOR UNKNOWN INDICATION
     Dosage: UNK
     Route: 065
  2. TACROLIMUS. [Suspect]
     Active Substance: TACROLIMUS
     Indication: LIVER TRANSPLANT
     Dosage: UNK
     Route: 065
  3. ENTECAVIR. [Suspect]
     Active Substance: ENTECAVIR
     Indication: PRODUCT USED FOR UNKNOWN INDICATION
     Dosage: UNK
     Route: 065
  4. TACROLIMUS. [Suspect]
     Active Substance: TACROLIMUS
     Dosage: UNK, DOSE REDUCED TO RUN A GOAL TROUGH OF 3-4 NG/ML
     Route: 065

REACTIONS (24)
  - Anaemia [Unknown]
  - Anuria [Unknown]
  - Toxicity to various agents [Unknown]
  - Seizure [Unknown]
  - Renal tubular injury [Unknown]
  - Mycoplasma infection [Unknown]
  - Thrombocytopenia [Unknown]
  - Haemophagocytic lymphohistiocytosis [Fatal]
  - Hypersplenism [Unknown]
  - Mental status changes [Unknown]
  - Abdominal tenderness [Unknown]
  - Fatigue [Recovered/Resolved]
  - Autoimmune haemolytic anaemia [Fatal]
  - Coagulopathy [Unknown]
  - Status epilepticus [Unknown]
  - Hyperbilirubinaemia [Unknown]
  - Splenomegaly [Unknown]
  - Hypotension [Unknown]
  - Ventricular fibrillation [Unknown]
  - Splenic haemorrhage [Unknown]
  - Metabolic acidosis [Unknown]
  - Sinus tachycardia [Unknown]
  - Dysarthria [Unknown]
  - Disorientation [Unknown]
